FAERS Safety Report 9005692 (Version 1)
Quarter: 2013Q1

REPORT INFORMATION
  Report Type: Spontaneous
  Country: US (occurrence: US)
  Receive Date: 20130109
  Receipt Date: 20130109
  Transmission Date: 20140127
  Serious: No
  Sender: FDA-Public Use
  Company Number: US-ABBOTT-12P-163-0899134-00

PATIENT
  Sex: Female

DRUGS (3)
  1. VICODIN [Suspect]
     Indication: PAIN
     Dosage: 5 MG/500 MG
  2. LYRICA [Suspect]
     Indication: PAIN
     Dosage: 75 MG
  3. MELOXICAM [Suspect]
     Indication: PAIN
     Dosage: 7.5 MG

REACTIONS (8)
  - Pain [Unknown]
  - Insomnia [Unknown]
  - Pain [Unknown]
  - Myalgia [Unknown]
  - Tendon pain [Unknown]
  - Drug ineffective [Unknown]
  - Ligament pain [Unknown]
  - Influenza like illness [Unknown]
